FAERS Safety Report 19387022 (Version 1)
Quarter: 2021Q2

REPORT INFORMATION
  Report Type: Spontaneous
  Country: US (occurrence: US)
  Receive Date: 20210607
  Receipt Date: 20210607
  Transmission Date: 20210717
  Serious: Yes (Hospitalization, Other)
  Sender: FDA-Public Use
  Company Number: US-LUNDBECK-DKLU3033847

PATIENT
  Age: 74 Year
  Sex: Male

DRUGS (2)
  1. NORTHERA [Suspect]
     Active Substance: DROXIDOPA
     Indication: AUTONOMIC NEUROPATHY
     Dosage: TITRATION COMPLETED
     Route: 065
     Dates: start: 20210428
  2. NORTHERA [Suspect]
     Active Substance: DROXIDOPA
     Indication: DIZZINESS

REACTIONS (1)
  - Renal disorder [Unknown]
